FAERS Safety Report 6441226-5 (Version None)
Quarter: 2009Q4

REPORT INFORMATION
  Report Type: 
  Country: None (occurrence: None)
  Receive Date: 20091113
  Receipt Date: 20091113
  Transmission Date: 20100525
  Serious: Yes (Other)
  Sender: FDA-Public Use
  Company Number: None

PATIENT
  Age: 54 Year
  Sex: Female
  Weight: 83.9154 kg

DRUGS (1)
  1. TAMIFLU [Suspect]
     Indication: H1N1 INFLUENZA
     Dosage: TAKE 1 CAPSULE EVERY DAY DAILY UNK
     Dates: start: 20090929, end: 20091002

REACTIONS (3)
  - BURNING SENSATION [None]
  - GAIT DISTURBANCE [None]
  - MOTOR DYSFUNCTION [None]
